FAERS Safety Report 24056625 (Version 1)
Quarter: 2024Q3

REPORT INFORMATION
  Report Type: Spontaneous
  Country: US (occurrence: US)
  Receive Date: 20240705
  Receipt Date: 20240705
  Transmission Date: 20241016
  Serious: No
  Sender: BOEHRINGER INGELHEIM
  Company Number: US-BoehringerIngelheim-2024-BI-038111

PATIENT
  Age: 52 Year
  Sex: Female

DRUGS (5)
  1. JARDIANCE [Suspect]
     Active Substance: EMPAGLIFLOZIN
     Indication: Blood glucose
     Dosage: DAILY DOSE: 10 MILLIGRAM(S)
  2. TRULICITY [Suspect]
     Active Substance: DULAGLUTIDE
     Indication: Blood glucose
     Dosage: UNKNOWN
     Route: 058
     Dates: start: 20240406
  3. TRULICITY [Suspect]
     Active Substance: DULAGLUTIDE
     Dosage: UNKNOWN
     Route: 058
     Dates: start: 20240406
  4. TRULICITY [Suspect]
     Active Substance: DULAGLUTIDE
     Dosage: UNKNOWN
     Route: 058
     Dates: start: 20240406
  5. METFORMIN [Suspect]
     Active Substance: METFORMIN HYDROCHLORIDE
     Indication: Blood glucose

REACTIONS (3)
  - Vomiting [Recovered/Resolved]
  - Diarrhoea [Recovered/Resolved]
  - Pollakiuria [Unknown]

NARRATIVE: CASE EVENT DATE: 20240608
